FAERS Safety Report 17752143 (Version 13)
Quarter: 2022Q3

REPORT INFORMATION
  Report Type: Spontaneous
  Country: US (occurrence: US)
  Receive Date: 20200506
  Receipt Date: 20220721
  Transmission Date: 20221027
  Serious: Yes (Hospitalization)
  Sender: FDA-Public Use
  Company Number: US-PFIZER INC-2020179218

PATIENT
  Age: 89 Year
  Sex: Female

DRUGS (1)
  1. CLEOCIN [Suspect]
     Active Substance: CLINDAMYCIN PHOSPHATE
     Indication: Sinusitis
     Dosage: 300 MG, 3X/DAY
     Route: 048

REACTIONS (27)
  - Fall [Recovered/Resolved]
  - Brain neoplasm [Unknown]
  - Vertigo [Unknown]
  - Seizure [Unknown]
  - Epistaxis [Unknown]
  - Dizziness [Unknown]
  - Feeling abnormal [Unknown]
  - Cough [Unknown]
  - Concussion [Unknown]
  - Eye infection [Unknown]
  - Speech disorder [Unknown]
  - Tremor [Unknown]
  - Hypoacusis [Unknown]
  - Neoplasm progression [Unknown]
  - Lymphoedema [Unknown]
  - Amnesia [Unknown]
  - Spinal disorder [Unknown]
  - Thyroid mass [Unknown]
  - Weight decreased [Unknown]
  - Hyperphagia [Unknown]
  - Pain [Unknown]
  - Drug effective for unapproved indication [Unknown]
  - Full blood count abnormal [Unknown]
  - Peripheral swelling [Unknown]
  - Stress [Unknown]
  - Muscle injury [Unknown]
  - Lung neoplasm [Unknown]
